FAERS Safety Report 14682546 (Version 1)
Quarter: 2018Q1

REPORT INFORMATION
  Report Type: Report from Study
  Country: US (occurrence: US)
  Receive Date: 20180327
  Receipt Date: 20180327
  Transmission Date: 20180509
  Serious: Yes (Other)
  Sender: FDA-Public Use
  Company Number: US-ROCHE-2093439

PATIENT

DRUGS (4)
  1. CETUXIMAB. [Suspect]
     Active Substance: CETUXIMAB
     Indication: RECTAL CANCER
     Dosage: LOADING DOSE ON DAY 1
     Route: 042
  2. CETUXIMAB. [Suspect]
     Active Substance: CETUXIMAB
     Dosage: ON DAYS 8, 15, 22, AND 29 OF CYCLE 1 AND DAYS 1, 8, 15, 22, AND 29 OF CYCLE 2.
     Route: 042
  3. CAPECITABINE. [Suspect]
     Active Substance: CAPECITABINE
     Indication: RECTAL CANCER
     Route: 048
  4. OXALIPLATIN. [Suspect]
     Active Substance: OXALIPLATIN
     Indication: RECTAL CANCER
     Dosage: ON DAYS 1, 8, 15, 22, AND 29 OF THE FIRST CYCLE AND DAYS 1, 8, 22, AND 29 OF THE SECOND CYCLE
     Route: 042

REACTIONS (22)
  - Vomiting [Unknown]
  - Anal inflammation [Unknown]
  - Aspartate aminotransferase abnormal [Unknown]
  - Dehydration [Unknown]
  - Nausea [Unknown]
  - Stomatitis [Unknown]
  - Anaemia [Unknown]
  - Hyponatraemia [Unknown]
  - Constipation [Unknown]
  - Palmar-plantar erythrodysaesthesia syndrome [Unknown]
  - Fatigue [Unknown]
  - Diarrhoea [Unknown]
  - Neutropenia [Unknown]
  - Decreased appetite [Unknown]
  - Rash [Unknown]
  - Acne [Unknown]
  - Alanine aminotransferase abnormal [Unknown]
  - Neuropathy peripheral [Unknown]
  - Hypokalaemia [Unknown]
  - Colitis [Unknown]
  - Lymphopenia [Unknown]
  - Blood bilirubin abnormal [Unknown]
